FAERS Safety Report 7229882-5 (Version None)
Quarter: 2011Q1

REPORT INFORMATION
  Report Type: 
  Country: None (occurrence: None)
  Receive Date: 20110117
  Receipt Date: 20110112
  Transmission Date: 20110831
  Serious: Yes (Disabling, Other)
  Sender: FDA-Public Use
  Company Number: CA-PFIZER INC-2010149678

PATIENT
  Age: 77 Year
  Sex: Male

DRUGS (5)
  1. ELTROXIN [Concomitant]
     Indication: HYPOTHYROIDISM
     Dosage: 0.15 MG, 1X/DAY
     Route: 048
     Dates: start: 20090310
  2. GEN-METFORMIN [Concomitant]
     Indication: DIABETES MELLITUS
     Dosage: 750 MG (250 MG IN AM AND 500 MG IN PM), UNK
     Route: 048
     Dates: start: 20091124
  3. ACCUPRIL [Suspect]
     Indication: HYPERTENSION
     Dosage: 20 MG, 1X/DAY
     Route: 048
     Dates: start: 20090202
  4. CRESTOR [Concomitant]
     Indication: HYPERLIPIDAEMIA
     Dosage: 10 MG, 1X/DAY
     Dates: start: 20090202
  5. HYDROCHLOROTHIAZIDE [Concomitant]
     Indication: HYPERTENSION
     Dosage: 2.5 MG (HALF TABLET), 1X/DAY
     Route: 048
     Dates: start: 20090916

REACTIONS (4)
  - ABDOMINAL PAIN UPPER [None]
  - HEADACHE [None]
  - TABLET PHYSICAL ISSUE [None]
  - THROAT IRRITATION [None]
